FAERS Safety Report 9406849 (Version 3)
Quarter: 2014Q1

REPORT INFORMATION
  Report Type: Spontaneous
  Country: GB (occurrence: GB)
  Receive Date: 20130718
  Receipt Date: 20140124
  Transmission Date: 20141002
  Serious: Yes (Hospitalization)
  Sender: FDA-Public Use
  Company Number: PHFR2013GB004030

PATIENT
  Age: 58 Year
  Sex: Male

DRUGS (3)
  1. CLOZARIL [Suspect]
     Indication: SCHIZOPHRENIA
     Dosage: UNK
     Route: 048
     Dates: start: 20031117
  2. CLOZARIL [Suspect]
     Indication: PSYCHOTIC DISORDER
     Dosage: 300 MG, NOCTE
     Route: 048
  3. ABILIFY [Concomitant]
     Indication: PSYCHOTIC DISORDER
     Dosage: 15 MG, DAILY
     Route: 048

REACTIONS (3)
  - Dehydration [Recovered/Resolved]
  - Malaise [Recovered/Resolved]
  - Lower respiratory tract infection [Recovered/Resolved]
